FAERS Safety Report 23082881 (Version 1)
Quarter: 2023Q4

REPORT INFORMATION
  Report Type: Spontaneous
  Country: US (occurrence: None)
  Receive Date: 20231018
  Receipt Date: 20231018
  Transmission Date: 20240110
  Serious: No
  Sender: FDA-Public Use
  Company Number: None

PATIENT
  Age: 46 Year
  Sex: Male

DRUGS (1)
  1. CYCLOBENZAPRINE [Suspect]
     Active Substance: CYCLOBENZAPRINE
     Indication: Muscle spasms
     Dosage: FREQUENCY : 3 TIMES A DAY;?
     Route: 048

REACTIONS (1)
  - Dry mouth [None]

NARRATIVE: CASE EVENT DATE: 20230801
